FAERS Safety Report 5610608-3 (Version None)
Quarter: 2008Q1

REPORT INFORMATION
  Report Type: 
  Country: None (occurrence: None)
  Receive Date: 20080128
  Receipt Date: 20080123
  Transmission Date: 20080703
  Serious: Yes (Life-Threatening, Hospitalization, Other)
  Sender: FDA-Public Use
  Company Number: 022969

PATIENT
  Age: 63 Year
  Sex: Female
  Weight: 63.5036 kg

DRUGS (2)
  1. NIMODIPINE [Suspect]
     Dosage: 2 POKED CAPS, UNDER THE TONGUE 2 CAPS, SINGLE, INTRAVENOUS
     Route: 042
     Dates: start: 20080121, end: 20080121
  2. NIMODIPINE [Suspect]
     Dosage: 2 POKED CAPS, UNDER THE TONGUE 2 CAPS, SINGLE, INTRAVENOUS
     Route: 042
     Dates: start: 20080118

REACTIONS (6)
  - BLOOD PRESSURE DECREASED [None]
  - BREATH SOUNDS ABNORMAL [None]
  - CEREBROVASCULAR ACCIDENT [None]
  - INCORRECT ROUTE OF DRUG ADMINISTRATION [None]
  - LIVER SCAN ABNORMAL [None]
  - OXYGEN SATURATION DECREASED [None]
